FAERS Safety Report 4318718-8 (Version None)
Quarter: 2004Q1

REPORT INFORMATION
  Report Type: 
  Country: None (occurrence: None)
  Receive Date: 20040315
  Receipt Date: 20040227
  Transmission Date: 20041129
  Serious: Yes (Hospitalization)
  Sender: FDA-Public Use
  Company Number: FR-SHR-04-021807

PATIENT
  Age: 46 Year
  Sex: Female

DRUGS (1)
  1. JASMINE (ETHINYLESTRADIOL, DROSPIRENONE)FILM TABLET [Suspect]
     Indication: ORAL CONTRACEPTION
     Dosage: 1 TAB(S), 21D/28D, ORAL
     Route: 048
     Dates: start: 20020101

REACTIONS (3)
  - ALDOSTERONE URINE INCREASED [None]
  - BLOOD ALDOSTERONE INCREASED [None]
  - GASTRITIS [None]
